FAERS Safety Report 7316679-0 (Version None)
Quarter: 2011Q1

REPORT INFORMATION
  Report Type: 
  Country: None (occurrence: None)
  Receive Date: 20110226
  Receipt Date: 20100728
  Transmission Date: 20110831
  Serious: No
  Sender: FDA-Public Use
  Company Number: US-ALLERGAN-1009825US

PATIENT
  Age: 44 Year
  Sex: Female

DRUGS (2)
  1. BOTOX COSMETIC [Suspect]
     Dosage: 20 UNITS, SINGLE
     Dates: start: 20090901
  2. BOTOX COSMETIC [Suspect]
     Indication: SKIN WRINKLING
     Dosage: 20 UNK, UNK
     Dates: start: 20100701, end: 20100701

REACTIONS (3)
  - DYSPHONIA [None]
  - SPEECH DISORDER [None]
  - SPASMODIC DYSPHONIA [None]
